FAERS Safety Report 6828283-9 (Version None)
Quarter: 2010Q3

REPORT INFORMATION
  Report Type: 
  Country: None (occurrence: None)
  Receive Date: 20100709
  Receipt Date: 20070205
  Transmission Date: 20110219
  Serious: No
  Sender: FDA-Public Use
  Company Number: US-PFIZER INC-2007010282

PATIENT
  Sex: Female

DRUGS (5)
  1. CHANTIX [Suspect]
     Indication: SMOKING CESSATION THERAPY
     Dates: start: 20070122, end: 20070201
  2. INSULIN [Concomitant]
  3. GLUCOPHAGE [Concomitant]
  4. FOSINOPRIL SODIUM [Concomitant]
     Indication: HYPERTENSION
  5. ATENOLOL [Concomitant]

REACTIONS (2)
  - ABNORMAL DREAMS [None]
  - INSOMNIA [None]
